FAERS Safety Report 22218109 (Version 1)
Quarter: 2023Q2

REPORT INFORMATION
  Report Type: Spontaneous
  Country: CH (occurrence: CH)
  Receive Date: 20230417
  Receipt Date: 20230417
  Transmission Date: 20230722
  Serious: Yes (Other)
  Sender: FDA-Public Use
  Company Number: None

PATIENT
  Age: 58 Year
  Sex: Male

DRUGS (36)
  1. AMLODIPINE BESYLATE [Suspect]
     Active Substance: AMLODIPINE BESYLATE
     Indication: Product used for unknown indication
     Dosage: 10 MILLIGRAM, QD(START DATE: 15-MAR-2023)
     Route: 048
  2. PIPERACILLIN SODIUM\TAZOBACTAM SODIUM [Suspect]
     Active Substance: PIPERACILLIN SODIUM\TAZOBACTAM SODIUM
     Indication: Pneumonia
     Dosage: 4.5 GRAM, Q8H (START DATE: 11-MAR-2023)
     Route: 042
     Dates: end: 20230312
  3. SOLU-CORTEF [Suspect]
     Active Substance: HYDROCORTISONE SODIUM SUCCINATE
     Indication: Product used for unknown indication
     Dosage: 100 MILLIGRAM, QD
     Route: 042
     Dates: start: 20230307, end: 20230307
  4. SOLU-CORTEF [Suspect]
     Active Substance: HYDROCORTISONE SODIUM SUCCINATE
     Dosage: 100 MILLIGRAM, Q8H
     Route: 042
     Dates: start: 20230308, end: 20230309
  5. PIPERACILLIN SODIUM\TAZOBACTAM SODIUM [Suspect]
     Active Substance: PIPERACILLIN SODIUM\TAZOBACTAM SODIUM
     Indication: Pneumonia
     Dosage: 4.5 GRAM, QD
     Route: 042
     Dates: start: 20230307, end: 20230307
  6. PIPERACILLIN SODIUM\TAZOBACTAM SODIUM [Suspect]
     Active Substance: PIPERACILLIN SODIUM\TAZOBACTAM SODIUM
     Dosage: 4.5 GRAM, Q8H
     Route: 042
     Dates: start: 20230308, end: 20230308
  7. VANCOMYCIN [Suspect]
     Active Substance: VANCOMYCIN
     Indication: Pneumonia
     Dosage: 1 GRAM, QD
     Route: 042
     Dates: start: 20230307, end: 20230307
  8. VANCOMYCIN [Suspect]
     Active Substance: VANCOMYCIN
     Dosage: 2 GRAM, QD
     Route: 042
     Dates: start: 20230308, end: 20230308
  9. LEVOFLOXACIN [Suspect]
     Active Substance: LEVOFLOXACIN
     Indication: Product used for unknown indication
     Dosage: UNK (START DATE: 08-MAR-2023)
     Route: 065
  10. CEFTRIAXONE [Suspect]
     Active Substance: CEFTRIAXONE
     Indication: Pneumonia
     Dosage: 4 GRAM, QD (START DATE: 09-MAR-2023)
     Route: 042
     Dates: end: 20230309
  11. CEFTRIAXONE [Suspect]
     Active Substance: CEFTRIAXONE
     Dosage: 2 GRAM, QD (START DATE: 10-MAR-2023)
     Route: 042
     Dates: end: 20230310
  12. AMOXICILLIN\CLAVULANATE POTASSIUM [Suspect]
     Active Substance: AMOXICILLIN\CLAVULANATE POTASSIUM
     Indication: Pneumonia
     Dosage: 2.2 GRAM, Q8H (START DATE: 10-MAR-2023)
     Route: 042
     Dates: end: 20230310
  13. AMOXICILLIN\CLAVULANATE POTASSIUM [Suspect]
     Active Substance: AMOXICILLIN\CLAVULANATE POTASSIUM
     Dosage: 1.2 GRAM, QD (START DATE: 11-MAR-2023)
     Route: 042
     Dates: end: 20230311
  14. AMOXICILLIN\CLAVULANATE POTASSIUM [Suspect]
     Active Substance: AMOXICILLIN\CLAVULANATE POTASSIUM
     Dosage: 1.2 GRAM, Q6H, (START DATE: 13-MAR-2023)
     Route: 042
     Dates: end: 20230315
  15. AMOXICILLIN\CLAVULANATE POTASSIUM [Suspect]
     Active Substance: AMOXICILLIN\CLAVULANATE POTASSIUM
     Dosage: 1.2 GRAM, Q6H (START DATE: 15-MAR-2023)
     Route: 042
  16. AMOXICILLIN\CLAVULANATE POTASSIUM [Suspect]
     Active Substance: AMOXICILLIN\CLAVULANATE POTASSIUM
     Indication: Pneumonia
     Dosage: 1 GRAM, Q8H (START DATE: 16-MAR-2023)
     Route: 048
  17. AMIKACIN [Suspect]
     Active Substance: AMIKACIN
     Indication: Product used for unknown indication
     Dosage: UNK, SINGLE DOSE (START DATE: 08-MAR-2023)
     Route: 065
  18. IMIPENEM [Suspect]
     Active Substance: IMIPENEM
     Indication: Product used for unknown indication
     Dosage: UNK, (START DATE: 12-MAR-2023)
     Route: 065
     Dates: end: 20230313
  19. LEVOFLOXACIN [Suspect]
     Active Substance: LEVOFLOXACIN
     Indication: Pneumonia
     Dosage: 500 MILLIGRAM, QD, (START DATE: 08-MAR-2023)
     Route: 042
     Dates: end: 20230308
  20. ESOMEPRAZOLE [Suspect]
     Active Substance: ESOMEPRAZOLE
     Indication: Product used for unknown indication
     Dosage: 40 MILLIGRAM, QD, (START DATE: 12-MAR-2023)
     Route: 048
  21. ESOMEPRAZOLE [Suspect]
     Active Substance: ESOMEPRAZOLE
     Indication: Product used for unknown indication
     Dosage: 40 MILLIGRAM, QD, (START DATE: 08-MAR-2023)
     Route: 042
     Dates: end: 20230311
  22. ESOMEPRAZOLE [Suspect]
     Active Substance: ESOMEPRAZOLE
     Dosage: 40 MILLIGRAM, QD, (STAT DATE: 11-MAR-2023)
     Route: 042
  23. ENALAPRIL MALEATE [Suspect]
     Active Substance: ENALAPRIL MALEATE
     Indication: Product used for unknown indication
     Dosage: 5 MILLIGRAM, BID, (START DATE: 11-MAR-2023)
     Route: 048
     Dates: end: 20230311
  24. ENALAPRIL MALEATE [Suspect]
     Active Substance: ENALAPRIL MALEATE
     Dosage: 10 MILLIGRAM, BID, (START DATE: 12-MAR-2023)
     Route: 048
     Dates: end: 20230315
  25. ENALAPRIL MALEATE [Suspect]
     Active Substance: ENALAPRIL MALEATE
     Dosage: 10 MILLIGRAM, BID, (START DATE: 15-MAR-2023)
     Route: 048
  26. ENALAPRIL [Suspect]
     Active Substance: ENALAPRIL
     Indication: Product used for unknown indication
     Dosage: 5 MILLIGRAM, BID,  (START DATE: 16-MAR-2023)
     Route: 048
  27. QUETIAPINE [Suspect]
     Active Substance: QUETIAPINE
     Indication: Product used for unknown indication
     Dosage: 25 MILLIGRAM, BID, (START DATE: 14-MAR-2023)
     Route: 048
  28. ACETAMINOPHEN [Suspect]
     Active Substance: ACETAMINOPHEN
     Indication: Pain
     Dosage: 1 GRAM, BID, (LAST DATE: 06-MAR-2023)
     Route: 065
  29. DAFALGAN [Suspect]
     Active Substance: ACETAMINOPHEN
     Indication: Product used for unknown indication
     Dosage: 500 MILLIGRAM, BID, (START DATE: 11-MAR-2023)
     Route: 048
     Dates: end: 20230312
  30. DAFALGAN [Suspect]
     Active Substance: ACETAMINOPHEN
     Dosage: 1000 MILLIGRAM, Q8H (START DATE: 13-MAR-2023)
     Route: 048
     Dates: end: 20230315
  31. DAFALGAN [Suspect]
     Active Substance: ACETAMINOPHEN
     Dosage: 500 MILLIGRAM, QID, AS NECESSARY (START DATE: 16-MAR-2023)
     Route: 048
  32. CILASTATIN SODIUM\IMIPENEM [Concomitant]
     Active Substance: CILASTATIN SODIUM\IMIPENEM
     Dosage: 3 GRAM, QD, (START DATE: 12-MAR-2023)
     Route: 042
     Dates: end: 20230313
  33. AMIKIN [Concomitant]
     Active Substance: AMIKACIN SULFATE
     Dosage: 1500 MILLIGRAM, QD,(START DATE: 08-MAR-2023)
     Route: 042
     Dates: end: 20230308
  34. PROPOFOL [Concomitant]
     Active Substance: PROPOFOL
     Dosage: UNK
     Route: 042
     Dates: start: 20230307, end: 20230311
  35. IBUPROFEN [Concomitant]
     Active Substance: IBUPROFEN
     Indication: Pain
     Dosage: UNK
     Route: 065
     Dates: end: 20230306
  36. INSULIN NOS [Concomitant]
     Active Substance: INSULIN NOS
     Dosage: UNK, (START DATE: 12-MAR-2023)
     Route: 042
     Dates: end: 20230315

REACTIONS (1)
  - Mixed liver injury [Not Recovered/Not Resolved]

NARRATIVE: CASE EVENT DATE: 20230307
